FAERS Safety Report 7003449-6 (Version None)
Quarter: 2010Q3

REPORT INFORMATION
  Report Type: 
  Country: None (occurrence: None)
  Receive Date: 20100916
  Receipt Date: 20100913
  Transmission Date: 20110219
  Serious: Yes (Hospitalization)
  Sender: FDA-Public Use
  Company Number: 1000014799

PATIENT
  Age: 79 Year
  Sex: Male

DRUGS (10)
  1. BYSTOLIC [Suspect]
     Indication: HYPERTENSION
     Dosage: 5 MG (5 MG, 1 IN 1 D), ORAL
     Route: 048
     Dates: start: 20100101, end: 20100421
  2. LANTUS (INSULIN GLARGINE) (INJECTION) (INSULIN GLARGINE) [Concomitant]
  3. NOVOLOG (INSULIN ASPART) (INJECTION) (INSULIN ASPART) [Concomitant]
  4. GEMFIBROZIL (GEMFIBROZIL) (TABLETS) (GEMFIBROZIL) [Concomitant]
  5. VITAMIN B-12 (CYANOCOBALAMIN) (CYANOCOBALAMIN) [Concomitant]
  6. ENALAPRIL (ENALAPRIL) (TABLETS) (ENALAPRIL) [Concomitant]
  7. HYDROCHLOROTHIAZIDE (HYDROCHLOROTHIAZIDE) (TABLETS) (HYDROCHLOROTHIAZI [Concomitant]
  8. ASA (ACETYLSALICYLIC ACID) (TABLETS) (ACETYLSALICYLIC ACID) [Concomitant]
  9. FLOMAX (TAMSULOSIN) (TABLETS) (TAMSULOSIN) [Concomitant]
  10. HYDRALAZINE (HYDRALAZINE) (TABLETS) (HYDRALAZINE) [Concomitant]

REACTIONS (2)
  - MITRAL VALVE INCOMPETENCE [None]
  - SINUS BRADYCARDIA [None]
